FAERS Safety Report 4587033-X (Version None)
Quarter: 2005Q1

REPORT INFORMATION
  Report Type: 
  Country: None (occurrence: None)
  Receive Date: 20050214
  Receipt Date: 20050131
  Transmission Date: 20050727
  Serious: Yes (Death)
  Sender: FDA-Public Use
  Company Number: 2004AP05910

PATIENT
  Age: 70 Year
  Sex: Male

DRUGS (14)
  1. DIPRIVAN [Suspect]
     Indication: SEDATIVE THERAPY
     Dosage: 2160 MG DAILY IV
     Route: 042
     Dates: start: 20041024, end: 20041026
  2. BISOLVON [Concomitant]
  3. DIFLUCAN [Concomitant]
  4. DORMICUM  /GFR/ [Concomitant]
  5. PAZUCROSS [Concomitant]
  6. ALBUMIN (HUMAN) [Concomitant]
  7. FIRSTCIN [Concomitant]
  8. HOKUNALIN [Concomitant]
  9. SOLU-MEDROL [Concomitant]
  10. HYDROCORTONE [Concomitant]
  11. CARBENIN [Concomitant]
  12. GASTER [Concomitant]
  13. VENOGLOBULIN [Concomitant]
  14. DIGOSIN [Concomitant]

REACTIONS (10)
  - CARDIAC ARREST [None]
  - ELECTROCARDIOGRAM QT PROLONGED [None]
  - ELECTROCARDIOGRAM R ON T PHENOMENON [None]
  - HYPERKALAEMIA [None]
  - RENAL FAILURE ACUTE [None]
  - TORSADE DE POINTES [None]
  - VENTRICULAR EXTRASYSTOLES [None]
  - VENTRICULAR FIBRILLATION [None]
  - VENTRICULAR HYPOKINESIA [None]
  - VENTRICULAR TACHYCARDIA [None]
